FAERS Safety Report 9101911 (Version 2)
Quarter: 2013Q2

REPORT INFORMATION
  Report Type: Spontaneous
  Country: AU (occurrence: AU)
  Receive Date: 20130218
  Receipt Date: 20130501
  Transmission Date: 20140414
  Serious: Yes (Hospitalization)
  Sender: FDA-Public Use
  Company Number: AU-NOVOPROD-370712

PATIENT
  Age: 72 Year
  Sex: Female

DRUGS (5)
  1. LEVEMIR FLEXPEN [Suspect]
     Indication: TYPE 1 DIABETES MELLITUS
     Dosage: UNK
     Route: 065
     Dates: start: 20120909
  2. LEVEMIR FLEXPEN [Suspect]
     Dosage: 12 U, QD (AT 8AM 4 UNITS AND AT 9PM 8 UNITS)
     Route: 065
  3. HUMALOG [Concomitant]
     Indication: TYPE 1 DIABETES MELLITUS
     Dosage: UNK
  4. HUMALOG [Concomitant]
     Dosage: 24 IU, QD (8AM 8 UNITS, 12 (8 UNITS) 6-7 (8 UNITS))
  5. TRITACE [Concomitant]

REACTIONS (15)
  - Hypotension [Not Recovered/Not Resolved]
  - Hypertension [Not Recovered/Not Resolved]
  - Circulatory collapse [Unknown]
  - Dehydration [Unknown]
  - Ankle fracture [Unknown]
  - Diarrhoea [Unknown]
  - Blood glucose decreased [Unknown]
  - Abdominal distension [Not Recovered/Not Resolved]
  - Sleep disorder [Not Recovered/Not Resolved]
  - Malaise [Not Recovered/Not Resolved]
  - Depression [Unknown]
  - Dizziness [Not Recovered/Not Resolved]
  - Weight increased [Not Recovered/Not Resolved]
  - Visual impairment [Not Recovered/Not Resolved]
  - Injection site reaction [Recovering/Resolving]
